FAERS Safety Report 12138563 (Version 1)
Quarter: 2016Q1

REPORT INFORMATION
  Report Type: Spontaneous
  Country: US (occurrence: US)
  Receive Date: 20160302
  Receipt Date: 20160302
  Transmission Date: 20160526
  Serious: Yes (Other)
  Sender: FDA-Public Use
  Company Number: US-PFIZER INC-2016123686

PATIENT
  Age: 57 Year
  Sex: Male

DRUGS (1)
  1. GABAPENTIN. [Suspect]
     Active Substance: GABAPENTIN
     Indication: LUMBAR RADICULOPATHY
     Dosage: 100 MG, 2X/DAY

REACTIONS (4)
  - Product use issue [Unknown]
  - Urinary retention [Unknown]
  - Back pain [Unknown]
  - Condition aggravated [Unknown]
